FAERS Safety Report 7095745-1 (Version None)
Quarter: 2010Q4

REPORT INFORMATION
  Report Type: 
  Country: None (occurrence: None)
  Receive Date: 20101111
  Receipt Date: 20101028
  Transmission Date: 20110411
  Serious: Yes (Other)
  Sender: FDA-Public Use
  Company Number: PHHY2010US65822

PATIENT
  Sex: Female

DRUGS (4)
  1. RECLAST [Suspect]
     Dosage: 5 MG
     Route: 042
     Dates: start: 20091001
  2. QUININE [Suspect]
     Indication: MUSCLE SPASMS
  3. SIMVASTATIN [Concomitant]
  4. OMEPRAZOLE [Concomitant]

REACTIONS (5)
  - BREAST MASS [None]
  - BREAST NEOPLASM [None]
  - JAW DISORDER [None]
  - LICHEN SCLEROSUS [None]
  - MUSCLE SPASMS [None]
